FAERS Safety Report 6395166-0 (Version None)
Quarter: 2009Q4

REPORT INFORMATION
  Report Type: 
  Country: None (occurrence: None)
  Receive Date: 20091009
  Receipt Date: 20090928
  Transmission Date: 20100525
  Serious: Yes (Hospitalization, Other)
  Sender: FDA-Public Use
  Company Number: PHHY2009JP25616

PATIENT
  Age: 79 Year
  Sex: Female

DRUGS (9)
  1. AMN107 AMN+CAP [Suspect]
     Indication: CHRONIC MYELOID LEUKAEMIA
     Dosage: 800 MG/DAY
     Route: 048
     Dates: start: 20090304, end: 20090502
  2. AMN107 AMN+CAP [Suspect]
     Dosage: 800 MG/DAY
     Route: 048
     Dates: start: 20090715
  3. OPALMON [Concomitant]
     Dosage: 30 MICROGRAM UNK
     Route: 048
     Dates: start: 20090304
  4. HYDREA [Concomitant]
     Indication: CHRONIC MYELOID LEUKAEMIA
     Dosage: 1000 MG, UNK
     Route: 048
     Dates: start: 20080430, end: 20090218
  5. MENECIT [Concomitant]
     Dosage: 100 MG, UNK
     Route: 048
     Dates: start: 20090304
  6. ZOLOFT [Concomitant]
     Dosage: 25 MG, UNK
     Route: 048
     Dates: start: 20090304
  7. SIFROL [Concomitant]
     Dosage: 1 MG, UNK
     Route: 048
     Dates: start: 20090304
  8. PARIET [Concomitant]
     Indication: PROPHYLAXIS
     Dosage: 10 MG, UNK
     Route: 048
     Dates: start: 20090507, end: 20090903
  9. CIPROFLOXACIN HYDROCHLORIDE [Concomitant]
     Indication: PROPHYLAXIS
     Dosage: 600 MG UNK
     Route: 048
     Dates: start: 20090521

REACTIONS (5)
  - BLOOD BILIRUBIN INCREASED [None]
  - ELECTROCARDIOGRAM QT PROLONGED [None]
  - MALIGNANT NEOPLASM PROGRESSION [None]
  - PANCYTOPENIA [None]
  - RASH [None]
